FAERS Safety Report 24082429 (Version 1)
Quarter: 2024Q3

REPORT INFORMATION
  Report Type: Spontaneous
  Country: CN (occurrence: CN)
  Receive Date: 20240712
  Receipt Date: 20240712
  Transmission Date: 20241017
  Serious: Yes (Hospitalization)
  Sender: JIANGSU HANSOH PHARMACEUTICAL
  Company Number: CN-Jiangsu Hansoh Pharmaceutical Co., Ltd-2159068

PATIENT
  Age: 70 Year
  Sex: Male
  Weight: 70 kg

DRUGS (4)
  1. PEMETREXED [Suspect]
     Active Substance: PEMETREXED
     Indication: Colon cancer
     Route: 041
     Dates: start: 20240629, end: 20240629
  2. PEMETREXED [Suspect]
     Active Substance: PEMETREXED
     Indication: Lung neoplasm malignant
  3. TISLELIZUMAB [Suspect]
     Active Substance: TISLELIZUMAB
     Route: 041
     Dates: start: 20240628, end: 20240628
  4. BEVACIZUMAB [Suspect]
     Active Substance: BEVACIZUMAB
     Route: 041
     Dates: start: 20240628, end: 20240628

REACTIONS (2)
  - Eosinophil count decreased [Unknown]
  - Off label use [Unknown]

NARRATIVE: CASE EVENT DATE: 20240701
